FAERS Safety Report 8319243-X (Version None)
Quarter: 2012Q2

REPORT INFORMATION
  Report Type: 
  Country: None (occurrence: None)
  Receive Date: 20120427
  Receipt Date: 20120419
  Transmission Date: 20120825
  Serious: Yes (Hospitalization)
  Sender: FDA-Public Use
  Company Number: HU-JNJFOC-20120404399

PATIENT
  Sex: Female
  Weight: 57 kg

DRUGS (6)
  1. PALIPERIDONE [Suspect]
     Indication: SCHIZOPHRENIA
     Route: 030
     Dates: start: 20110407
  2. PALIPERIDONE [Suspect]
     Route: 030
     Dates: start: 20110414, end: 20111103
  3. BIPERIDEN HYDROCHLORIDE TAB [Concomitant]
     Indication: AKATHISIA
     Route: 048
     Dates: start: 20110520, end: 20120405
  4. PALIPERIDONE [Suspect]
     Route: 030
     Dates: start: 20111202, end: 20120404
  5. CLONAZEPAM [Concomitant]
     Indication: ANXIETY
     Route: 048
     Dates: start: 20111225, end: 20120409
  6. CLONAZEPAM [Concomitant]
     Route: 048
     Dates: start: 20110525

REACTIONS (1)
  - SCHIZOPHRENIA [None]
